FAERS Safety Report 7061774-7 (Version None)
Quarter: 2010Q4

REPORT INFORMATION
  Report Type: 
  Country: None (occurrence: None)
  Receive Date: 20101026
  Receipt Date: 20101018
  Transmission Date: 20110411
  Serious: Yes (Hospitalization, Other)
  Sender: FDA-Public Use
  Company Number: CN-ASTRAZENECA-2010SE48845

PATIENT
  Age: 38 Year
  Sex: Female

DRUGS (1)
  1. LIDOCAINE [Suspect]
     Indication: ANAESTHESIA
     Dates: start: 20080320, end: 20080320

REACTIONS (4)
  - ALVEOLITIS ALLERGIC [None]
  - ANAPHYLACTIC SHOCK [None]
  - CARDIOMYOPATHY ACUTE [None]
  - URTICARIA [None]
